FAERS Safety Report 13912179 (Version 1)
Quarter: 2017Q3

REPORT INFORMATION
  Report Type: Spontaneous
  Country: US (occurrence: US)
  Receive Date: 20170828
  Receipt Date: 20170828
  Transmission Date: 20171127
  Serious: No
  Sender: FDA-Public Use
  Company Number: US-ROCHE-GNE093148

PATIENT
  Age: 12 Year
  Sex: Female

DRUGS (1)
  1. NUTROPIN AQ [Suspect]
     Active Substance: SOMATROPIN
     Indication: DWARFISM
     Route: 058
     Dates: start: 19990501, end: 19990615

REACTIONS (6)
  - Limb discomfort [Unknown]
  - Erythema [Unknown]
  - Dizziness [Unknown]
  - Arthralgia [Unknown]
  - Hyperhidrosis [Unknown]
  - Rash [Unknown]

NARRATIVE: CASE EVENT DATE: 199906
